FAERS Safety Report 19238023 (Version 1)
Quarter: 2021Q2

REPORT INFORMATION
  Report Type: Spontaneous
  Country: US (occurrence: US)
  Receive Date: 20210510
  Receipt Date: 20210510
  Transmission Date: 20210717
  Serious: No
  Sender: FDA-Public Use
  Company Number: US-GLAXOSMITHKLINE-US2021095989

PATIENT
  Sex: Male

DRUGS (1)
  1. INCRUSE ELLIPTA [Suspect]
     Active Substance: UMECLIDINIUM BROMIDE
     Indication: PRODUCT USED FOR UNKNOWN INDICATION
     Dosage: 62.5 ?G (ONCE A DAY, EVERY OTHER DAY, AND SOMETIMES TWICE A DAY)
     Route: 055
     Dates: start: 2020

REACTIONS (8)
  - Confusional state [Unknown]
  - Extra dose administered [Unknown]
  - Device use error [Unknown]
  - Memory impairment [Unknown]
  - Product storage error [Unknown]
  - Product dispensing error [Unknown]
  - Underdose [Unknown]
  - Product dose omission issue [Unknown]
